FAERS Safety Report 5427041-X (Version None)
Quarter: 2007Q3

REPORT INFORMATION
  Report Type: 
  Country: None (occurrence: None)
  Receive Date: 20070824
  Receipt Date: 20070824
  Transmission Date: 20080115
  Serious: Yes (Hospitalization)
  Sender: FDA-Public Use
  Company Number: None

PATIENT
  Sex: Female

DRUGS (10)
  1. CETUXIMAB [Suspect]
     Indication: PANCREATIC CARCINOMA
     Dosage: IV
     Route: 042
     Dates: start: 20070417
  2. GEMCITABINE HCL [Suspect]
     Indication: PANCREATIC CARCINOMA
     Dosage: IV
     Route: 042
     Dates: start: 20070417
  3. OXALIPLATIN [Suspect]
     Indication: PANCREATIC CARCINOMA
     Dosage: IV
     Route: 042
     Dates: start: 20070418
  4. QUESTRAN [Concomitant]
  5. DARVOCET [Concomitant]
  6. VICODIN [Concomitant]
  7. REGLAN [Concomitant]
  8. TOPROL-XL [Concomitant]
  9. NORVASC [Concomitant]
  10. NEXIUM [Concomitant]

REACTIONS (2)
  - HAEMOGLOBIN DECREASED [None]
  - MYOCARDIAL INFARCTION [None]
